FAERS Safety Report 8042292-6 (Version None)
Quarter: 2012Q1

REPORT INFORMATION
  Report Type: 
  Country: None (occurrence: None)
  Receive Date: 20120112
  Receipt Date: 20120105
  Transmission Date: 20120608
  Serious: Yes (Hospitalization)
  Sender: FDA-Public Use
  Company Number: US-ROCHE-656703

PATIENT
  Sex: Male
  Weight: 72.7 kg

DRUGS (58)
  1. ACTEMRA [Suspect]
     Dosage: LAST DOSE PRIOR TO SAE: 7 SEP 2010
     Route: 042
     Dates: start: 20100614, end: 20101004
  2. POTASSIUM CHLORIDE [Concomitant]
     Indication: FLUID RETENTION
     Dosage: FREQUENCY: QD
     Route: 048
     Dates: start: 20060501, end: 20060713
  3. NOVOLOG [Concomitant]
     Indication: DIABETES MELLITUS
     Dosage: DOSE: 2 UNITS ONE TIME
     Dates: start: 20090813, end: 20090813
  4. LOPRESSOR [Concomitant]
     Route: 048
     Dates: start: 20100518, end: 20100520
  5. ACETAMINOPHEN [Concomitant]
     Indication: CARDIAC PACEMAKER INSERTION
     Dates: start: 20100518, end: 20100519
  6. BUMEX [Concomitant]
     Indication: FLUID RETENTION
     Dosage: AS PER REQUIRED
     Route: 048
  7. ZESTRIL [Concomitant]
     Indication: ATRIOVENTRICULAR BLOCK COMPLETE
     Route: 048
     Dates: start: 20100518, end: 20100520
  8. LASIX [Concomitant]
     Route: 042
     Dates: start: 20100929, end: 20101004
  9. DUONEB [Concomitant]
     Indication: DYSPNOEA
     Dosage: 1 UNIT DOSE
  10. ACTEMRA [Suspect]
     Dosage: LAST DOSE PRIOR TO SAE: 03 OCTOBER 2011
     Route: 042
  11. FUROSEMIDE [Concomitant]
     Indication: FLUID RETENTION
     Dosage: FREQUENCY: QD
     Route: 048
     Dates: start: 20060501, end: 20060611
  12. AMARYL [Concomitant]
     Indication: DIABETES MELLITUS
     Dosage: FREQUENCY: QD
     Route: 048
     Dates: start: 20060401, end: 20071201
  13. COREG [Concomitant]
     Route: 048
     Dates: start: 20100927, end: 20100927
  14. VITAMIN D [Concomitant]
     Indication: MEDICAL DIET
  15. VASOTEC [Concomitant]
     Route: 048
     Dates: start: 20100928, end: 20101004
  16. EFFEXOR [Concomitant]
     Route: 048
  17. LASIX [Concomitant]
     Route: 048
     Dates: start: 20101005, end: 20101008
  18. ALDACTONE [Concomitant]
     Indication: CARDIAC FAILURE CONGESTIVE
     Route: 048
     Dates: start: 20100928, end: 20100928
  19. FUROSEMIDE [Concomitant]
     Dosage: FREQUENCY: QD
     Route: 048
     Dates: start: 20060714, end: 20071201
  20. LOPRESSOR [Concomitant]
     Indication: HYPERTENSION
     Route: 048
     Dates: start: 20080817, end: 20090813
  21. PEPCID [Concomitant]
     Indication: PROPHYLAXIS
     Route: 048
     Dates: start: 20080812, end: 20090814
  22. NITROGLYCERIN [Concomitant]
     Route: 061
     Dates: start: 20100518, end: 20100520
  23. VERSED [Concomitant]
     Indication: CARDIAC PACEMAKER INSERTION
     Route: 042
     Dates: start: 20100518, end: 20100518
  24. BACITRACIN [Concomitant]
     Indication: CARDIAC PACEMAKER INSERTION
     Dosage: DOSE: 5000 UNITS ONE TIME
     Route: 061
     Dates: start: 20100518, end: 20100518
  25. ACTEMRA [Suspect]
     Dosage: PATIENT PREVIOUSLY ENROLLED IN WA17824
     Route: 065
  26. LOVENOX [Concomitant]
     Indication: THROMBOSIS PROPHYLAXIS
     Dosage: FREQUENCY: DAILY
     Route: 048
     Dates: start: 20090810, end: 20090812
  27. IMDUR [Concomitant]
     Indication: HYPERTENSION
     Route: 048
  28. LASIX [Concomitant]
     Route: 042
     Dates: start: 20100928, end: 20100928
  29. ACTEMRA [Suspect]
     Indication: RHEUMATOID ARTHRITIS
     Dosage: LAST DOSE PRIOR TO SAE:03/OCT/2011
     Route: 042
  30. VITAMIN C [Concomitant]
  31. LISINOPRIL AND HYDROCHLOROTHIAZIDE [Concomitant]
     Indication: HYPERTENSION
     Route: 048
     Dates: start: 20060401, end: 20080201
  32. LISINOPRIL AND HYDROCHLOROTHIAZIDE [Concomitant]
     Dosage: DOSE REPORTED: 1 TAB PRN
     Route: 048
     Dates: start: 20080326, end: 20100615
  33. PLAVIX [Concomitant]
     Indication: CORONARY ARTERIAL STENT INSERTION
     Dosage: FREQUENCY: QD
     Route: 048
     Dates: start: 20060513, end: 20071201
  34. POTASSIUM CHLORIDE [Concomitant]
     Dosage: FREQUENCY: QD
     Route: 048
     Dates: start: 20060714, end: 20071201
  35. NORVASC [Concomitant]
     Indication: HYPERTENSION
     Dosage: AS REQUIRED
     Route: 048
  36. NORVASC [Concomitant]
     Dosage: FREQUENCY: QD
     Route: 048
     Dates: start: 20100518, end: 20100520
  37. HYDRALAZINE HCL [Concomitant]
     Indication: CARDIAC PACEMAKER INSERTION
     Route: 042
     Dates: start: 20100518, end: 20100518
  38. CIPROFLOXACIN [Concomitant]
     Indication: URINARY TRACT INFECTION
     Dosage: ONE TIME DOSE
     Route: 048
     Dates: start: 20110708, end: 20110713
  39. CIPROFLOXACIN [Concomitant]
     Route: 048
     Dates: start: 20110711
  40. GARLIC [Concomitant]
     Indication: MEDICAL DIET
  41. SPIRIVA [Concomitant]
     Dosage: 1 AS REQUIERD
     Route: 055
  42. COREG [Concomitant]
     Indication: HYPERTENSION
     Dosage: FREQUENCY: QD
     Route: 048
     Dates: start: 20090813, end: 20090814
  43. IMDUR [Concomitant]
     Route: 048
     Dates: start: 20100520, end: 20100520
  44. VASOTEC [Concomitant]
     Indication: CARDIAC FAILURE CONGESTIVE
     Route: 048
     Dates: start: 20100927, end: 20100927
  45. LASIX [Concomitant]
     Indication: CARDIAC FAILURE CONGESTIVE
     Route: 042
     Dates: start: 20100927, end: 20100927
  46. SPIRIVA [Concomitant]
     Indication: DYSPNOEA
     Dosage: FREQUENCY: QD
     Route: 055
     Dates: start: 20060713, end: 20071201
  47. METFORMIN HCL [Concomitant]
     Indication: DIABETES MELLITUS
     Route: 048
     Dates: start: 20060401, end: 20060904
  48. LOPRESSOR [Concomitant]
     Dosage: 1 AS REQUIRED
     Route: 048
  49. MULTIVITAMIN NOS [Concomitant]
     Indication: MEDICAL DIET
     Route: 048
     Dates: start: 20090813, end: 20090814
  50. LANOXIN [Concomitant]
     Indication: CARDIAC FAILURE CONGESTIVE
     Route: 048
     Dates: start: 20100928, end: 20100928
  51. PROTONIX [Concomitant]
     Route: 048
     Dates: start: 20100928
  52. LISINOPRIL AND HYDROCHLOROTHIAZIDE [Concomitant]
     Dosage: FREQUENCY: QD
     Route: 048
     Dates: start: 20090812, end: 20090813
  53. LISINOPRIL AND HYDROCHLOROTHIAZIDE [Concomitant]
     Dosage: FREQUENCY: QD
     Route: 048
     Dates: start: 20100518, end: 20100520
  54. PLAVIX [Concomitant]
     Dosage: FREQUENCY: QD
     Route: 048
     Dates: start: 20090813, end: 20090814
  55. FUROSEMIDE [Concomitant]
     Dosage: FREQUENCY: QD
     Route: 048
     Dates: start: 20060612, end: 20060713
  56. ANCEF [Concomitant]
     Indication: PROPHYLAXIS
     Route: 042
  57. LEVEMIR [Concomitant]
     Indication: DIABETES MELLITUS
     Dosage: 20 UNITS ONE TIME
     Dates: start: 20100927, end: 20100927
  58. DOBUTAMINE HCL [Concomitant]
     Indication: CARDIAC FAILURE CONGESTIVE
     Dosage: ONE TIME
     Route: 042
     Dates: start: 20100929, end: 20100929

REACTIONS (3)
  - ANGINA PECTORIS [None]
  - CARDIAC FAILURE CONGESTIVE [None]
  - ATRIOVENTRICULAR BLOCK COMPLETE [None]
